FAERS Safety Report 5700009-1 (Version None)
Quarter: 2008Q2

REPORT INFORMATION
  Report Type: 
  Country: None (occurrence: None)
  Receive Date: 20080410
  Receipt Date: 20080402
  Transmission Date: 20081010
  Serious: Yes (Hospitalization)
  Sender: FDA-Public Use
  Company Number: IT-ASTRAZENECA-2008SE01730

PATIENT
  Age: 21964 Day
  Sex: Female

DRUGS (5)
  1. SIMESTAT [Suspect]
     Indication: HYPERCHOLESTEROLAEMIA
     Route: 048
     Dates: start: 20030101, end: 20080220
  2. TEGRETOL [Suspect]
     Indication: DEPRESSION
     Route: 048
     Dates: start: 20071001, end: 20080220
  3. PANTOPRAZOLE SODIUM [Concomitant]
  4. SODIUM ALGINATE [Concomitant]
  5. SODIUM CARBONATE [Concomitant]

REACTIONS (3)
  - ASTHENIA [None]
  - CHROMATURIA [None]
  - JAUNDICE [None]
